FAERS Safety Report 23076312 (Version 1)
Quarter: 2023Q4

REPORT INFORMATION
  Report Type: Spontaneous
  Country: US (occurrence: US)
  Receive Date: 20231017
  Receipt Date: 20231017
  Transmission Date: 20240110
  Serious: Yes (Other)
  Sender: FDA-Public Use
  Company Number: US-INTRA-CELLULAR THERAPIES, INC.-2023ICT01123

PATIENT
  Sex: Female

DRUGS (12)
  1. CAPLYTA [Suspect]
     Active Substance: LUMATEPERONE
     Indication: Bipolar disorder
     Dosage: 42 MG SAMPLES, 1X/DAY
     Route: 048
     Dates: start: 20230503, end: 20230516
  2. CAPLYTA [Suspect]
     Active Substance: LUMATEPERONE
     Indication: Depression
     Dosage: 42 MG, 1X/DAY
     Route: 048
     Dates: start: 20230517, end: 202307
  3. CAPLYTA [Suspect]
     Active Substance: LUMATEPERONE
     Indication: Affective disorder
     Dosage: 21 MG, 1X/DAY
     Route: 048
     Dates: start: 202307
  4. UNSPECIFIED INGREDIENT [Suspect]
     Active Substance: UNSPECIFIED INGREDIENT
     Indication: Urinary tract infection
     Dosage: UNK
     Dates: start: 2023
  5. UNSPECIFIED INGREDIENT [Suspect]
     Active Substance: UNSPECIFIED INGREDIENT
     Indication: Smoking cessation therapy
     Dosage: UNK
     Dates: start: 20230615
  6. ADDERALL XR [Concomitant]
     Active Substance: AMPHETAMINE ASPARTATE\AMPHETAMINE SULFATE\DEXTROAMPHETAMINE SACCHARATE\DEXTROAMPHETAMINE SULFATE
     Dosage: 25 MG, 1X/DAY
     Dates: end: 20230920
  7. ADDERALL XR [Concomitant]
     Active Substance: AMPHETAMINE ASPARTATE\AMPHETAMINE SULFATE\DEXTROAMPHETAMINE SACCHARATE\DEXTROAMPHETAMINE SULFATE
     Dosage: 30 MG, 1X/DAY IN AM
     Dates: start: 20230921
  8. HYDROXYZINE HYDROCHLORIDE [Concomitant]
     Active Substance: HYDROXYZINE HYDROCHLORIDE
     Dosage: 1 TO 2 TABS, TWICE DAILY AS NEEDED
  9. LEVOTHYROXINE [Concomitant]
     Active Substance: LEVOTHYROXINE
     Dosage: 75 MG, 1X/DAY
  10. ORTHO NOVUM [ETHINYLESTRADIOL;NORETHISTERONE] [Concomitant]
     Dosage: 1 MG-35 MG, 1X/DAY
  11. VYVANSE [Concomitant]
     Active Substance: LISDEXAMFETAMINE DIMESYLATE
     Dosage: 60 MG, 1X/DAY
     Dates: end: 20230920
  12. UNSPECIFIED INGREDIENT [Concomitant]
     Active Substance: UNSPECIFIED INGREDIENT

REACTIONS (34)
  - Loss of consciousness [Recovered/Resolved]
  - Urinary retention [Recovering/Resolving]
  - Pollakiuria [Recovering/Resolving]
  - Gastrooesophageal reflux disease [Recovered/Resolved]
  - Pelvic pain [Recovered/Resolved]
  - Urinary incontinence [Recovered/Resolved]
  - Temperature regulation disorder [Recovered/Resolved]
  - Blood glucose decreased [Recovered/Resolved]
  - Stress [Not Recovered/Not Resolved]
  - Road traffic accident [Recovered/Resolved]
  - Urinary tract infection [Recovering/Resolving]
  - Pelvic floor dysfunction [Unknown]
  - Disturbance in attention [Not Recovered/Not Resolved]
  - Feeling of despair [Unknown]
  - Decreased appetite [Unknown]
  - Gastrointestinal disorder [Not Recovered/Not Resolved]
  - Skin lesion [Unknown]
  - Fatigue [Not Recovered/Not Resolved]
  - Weight decreased [Unknown]
  - Menstruation delayed [Unknown]
  - Heavy menstrual bleeding [Unknown]
  - Anaemia [Not Recovered/Not Resolved]
  - Nightmare [Recovering/Resolving]
  - Anxiety [Recovering/Resolving]
  - Nicotine dependence [Unknown]
  - Flashback [Not Recovered/Not Resolved]
  - Abdominal pain upper [Recovered/Resolved]
  - Sleep disorder [Recovering/Resolving]
  - Nausea [Recovering/Resolving]
  - Vision blurred [Recovered/Resolved]
  - Unevaluable event [Unknown]
  - Vomiting [Recovering/Resolving]
  - Somnolence [Not Recovered/Not Resolved]
  - Diarrhoea [Not Recovered/Not Resolved]

NARRATIVE: CASE EVENT DATE: 20230101
